FAERS Safety Report 13703348 (Version 1)
Quarter: 2017Q2

REPORT INFORMATION
  Report Type: Spontaneous
  Country: FR (occurrence: FR)
  Receive Date: 20170629
  Receipt Date: 20170629
  Transmission Date: 20170830
  Serious: Yes (Hospitalization)
  Sender: FDA-Public Use
  Company Number: FR-TEVA-781433ROM

PATIENT
  Age: 67 Year
  Sex: Male
  Weight: 80 kg

DRUGS (6)
  1. ALKERAN [Suspect]
     Active Substance: MELPHALAN
     Indication: BONE MARROW CONDITIONING REGIMEN
     Dosage: CONSOLIDATION CHEMOTHERAPY ACCORDING TO Z-BEAM PROTOCOL
     Route: 041
     Dates: start: 20160621, end: 20160621
  2. MABTHERA [Suspect]
     Active Substance: RITUXIMAB
     Indication: BONE MARROW CONDITIONING REGIMEN
     Dosage: 500 MILLIGRAM DAILY; EXACT FORM: CONCENTRATE FOR SOLUTION FOR INFUSION
     Route: 041
     Dates: start: 20160602, end: 20160608
  3. ZEVALIN [Suspect]
     Active Substance: IBRITUMOMAB TIUXETAN
     Indication: BONE MARROW CONDITIONING REGIMEN
     Route: 041
     Dates: start: 20160608, end: 20160608
  4. CYTARABINE SANDOZ [Suspect]
     Active Substance: CYTARABINE
     Indication: BONE MARROW CONDITIONING REGIMEN
     Dosage: 800 MILLIGRAM DAILY; CONSOLIDATION CHEMOTHERAPY ACCORDING TO Z-BEAM PROTOCOL
     Route: 041
     Dates: start: 20160617, end: 20160620
  5. BICNU [Suspect]
     Active Substance: CARMUSTINE
     Indication: BONE MARROW CONDITIONING REGIMEN
     Dosage: CONSOLIDATION CHEMOTHERAPY ACCORDING TO Z-BEAM PROTOCOL
     Route: 041
     Dates: start: 20160617, end: 20160617
  6. ETOPOSIDE TEVA [Suspect]
     Active Substance: ETOPOSIDE
     Indication: BONE MARROW CONDITIONING REGIMEN
     Dosage: 400 MILLIGRAM DAILY; CONSOLIDATION CHEMOTHERAPY ACCORDING TO Z-BEAM PROTOCOL
     Route: 041
     Dates: start: 20160617, end: 20160620

REACTIONS (2)
  - Staphylococcal infection [Recovered/Resolved]
  - Aplasia [Recovered/Resolved]

NARRATIVE: CASE EVENT DATE: 20160624
